FAERS Safety Report 10557982 (Version 2)
Quarter: 2015Q1

REPORT INFORMATION
  Report Type: Spontaneous
  Country: JP (occurrence: None)
  Receive Date: 20141029
  Receipt Date: 20150108
  Transmission Date: 20150720
  Serious: Yes (Hospitalization)
  Sender: FDA-Public Use
  Company Number: ABR_01845_2014

PATIENT
  Sex: Male

DRUGS (2)
  1. GLIADEL [Suspect]
     Active Substance: CARMUSTINE
     Indication: MALIGNANT GLIOMA
     Dosage: 8 DF 1X INTRACEREBRAL??
     Dates: start: 20140916
  2. AMINOLEVULINIC ACID HYDROCHLORIDE [Concomitant]
     Active Substance: AMINOLEVULINIC ACID HYDROCHLORIDE

REACTIONS (7)
  - Pneumonia [None]
  - Pneumocephalus [None]
  - Flatulence [None]
  - Dysphagia [None]
  - Post procedural complication [None]
  - Hydrocephalus [None]
  - Depressed level of consciousness [None]

NARRATIVE: CASE EVENT DATE: 20140922
